FAERS Safety Report 20819007 (Version 2)
Quarter: 2023Q4

REPORT INFORMATION
  Report Type: Spontaneous
  Country: US (occurrence: US)
  Receive Date: 20220512
  Receipt Date: 20231113
  Transmission Date: 20240109
  Serious: No
  Sender: FDA-Public Use
  Company Number: US-TEVA-2022-US-2027948

PATIENT
  Age: 73 Year
  Sex: Female

DRUGS (3)
  1. CLONAZEPAM [Suspect]
     Active Substance: CLONAZEPAM
     Indication: Anxiety
     Dosage: .5 MILLIGRAM DAILY;
     Route: 065
     Dates: start: 2015, end: 2017
  2. CLONAZEPAM [Suspect]
     Active Substance: CLONAZEPAM
     Indication: Panic attack
  3. CLONAZEPAM [Suspect]
     Active Substance: CLONAZEPAM
     Indication: Post-traumatic stress disorder

REACTIONS (8)
  - Malaise [Recovered/Resolved]
  - Reaction to excipient [Not Recovered/Not Resolved]
  - Illness [Recovered/Resolved]
  - Abdominal discomfort [Not Recovered/Not Resolved]
  - Anxiety [Unknown]
  - Drug ineffective for unapproved indication [Recovered/Resolved]
  - Expired product administered [Unknown]
  - Product taste abnormal [Unknown]
